FAERS Safety Report 7595346-2 (Version None)
Quarter: 2011Q3

REPORT INFORMATION
  Report Type: 
  Country: None (occurrence: None)
  Receive Date: 20110707
  Receipt Date: 20110630
  Transmission Date: 20111222
  Serious: Yes (Hospitalization)
  Sender: FDA-Public Use
  Company Number: FR-PFIZER INC-2011145946

PATIENT
  Age: 71 Year
  Sex: Female

DRUGS (9)
  1. ATORVASTATIN CALCIUM [Suspect]
     Indication: LIPIDS INCREASED
     Dosage: 80 MG, 1X/DAY
     Dates: start: 20110411, end: 20110425
  2. TRANDOLAPRIL [Concomitant]
     Indication: HYPERTENSION
  3. INNOHEP [Concomitant]
     Indication: PROPHYLAXIS
  4. ESIDRIX [Concomitant]
     Indication: HYPERTENSION
  5. PROPRANOLOL [Concomitant]
     Indication: HYPERTENSION
  6. CIPROFLOXACIN [Concomitant]
     Indication: KLEBSIELLA INFECTION
  7. ASPIRIN [Concomitant]
     Indication: PROPHYLAXIS
  8. PANTOPRAZOLE [Concomitant]
     Indication: GASTROOESOPHAGEAL REFLUX DISEASE
  9. PLAVIX [Concomitant]
     Indication: PROPHYLAXIS

REACTIONS (2)
  - CYTOLYTIC HEPATITIS [None]
  - HEPATITIS CHOLESTATIC [None]
